FAERS Safety Report 4553322-8 (Version None)
Quarter: 2005Q1

REPORT INFORMATION
  Report Type: 
  Country: None (occurrence: None)
  Receive Date: 20050112
  Receipt Date: 19970103
  Transmission Date: 20050727
  Serious: Yes (Death)
  Sender: FDA-Public Use
  Company Number: KII-1997-0014523

PATIENT
  Sex: Male

DRUGS (2)
  1. OXYCONTIN [Suspect]
     Dosage: SEE IMAGE
  2. MORPHINE SULFATE [Suspect]

REACTIONS (2)
  - DYSPNOEA [None]
  - MEDICATION ERROR [None]
